FAERS Safety Report 7311064-X (Version None)
Quarter: 2011Q1

REPORT INFORMATION
  Report Type: 
  Country: None (occurrence: None)
  Receive Date: 20110224
  Receipt Date: 20110215
  Transmission Date: 20110831
  Serious: Yes (Hospitalization, Other)
  Sender: FDA-Public Use
  Company Number: US-PFIZER INC-2010177243

PATIENT
  Sex: Male

DRUGS (4)
  1. DILTIAZEM [Concomitant]
     Dosage: UNK
     Dates: start: 20100909
  2. ASPIRIN [Concomitant]
     Dosage: UNK
     Dates: start: 20100909
  3. FOLIC ACID [Concomitant]
     Dosage: UNK
     Dates: start: 20100909
  4. SUTENT [Suspect]
     Indication: RENAL CELL CARCINOMA
     Dosage: 50 MG DAILY FOR 28 DAYS EVERY 6 WEEKS
     Route: 048
     Dates: start: 20100927, end: 20101112

REACTIONS (8)
  - HYPERTENSION [None]
  - CHRONIC OBSTRUCTIVE PULMONARY DISEASE [None]
  - ABDOMINAL PAIN [None]
  - RENAL FAILURE CHRONIC [None]
  - DIARRHOEA [None]
  - DIVERTICULITIS [None]
  - PERITONITIS BACTERIAL [None]
  - PULMONARY OEDEMA [None]
